FAERS Safety Report 25482061 (Version 2)
Quarter: 2025Q3

REPORT INFORMATION
  Report Type: Spontaneous
  Country: US (occurrence: US)
  Receive Date: 20250626
  Receipt Date: 20250708
  Transmission Date: 20251020
  Serious: No
  Sender: AJANTA PHARMA USA INC
  Company Number: US-AJANTA-2025AJA00082

PATIENT
  Age: 58 Year
  Sex: Male
  Weight: 200 kg

DRUGS (4)
  1. TADALAFIL [Suspect]
     Active Substance: TADALAFIL
     Indication: Sexual dysfunction
     Dates: start: 2024, end: 202505
  2. TADALAFIL [Suspect]
     Active Substance: TADALAFIL
     Dates: start: 20250530, end: 2025
  3. TADALAFIL [Suspect]
     Active Substance: TADALAFIL
     Dates: start: 20250610, end: 20250610
  4. BENAZEPRIL [Concomitant]
     Active Substance: BENAZEPRIL HYDROCHLORIDE

REACTIONS (4)
  - Dyspnoea [Unknown]
  - Dizziness [Unknown]
  - Asthenia [Unknown]
  - Product quality issue [Unknown]

NARRATIVE: CASE EVENT DATE: 20250101
